FAERS Safety Report 11702478 (Version 1)
Quarter: 2015Q4

REPORT INFORMATION
  Report Type: Spontaneous
  Country: US (occurrence: None)
  Receive Date: 20151105
  Receipt Date: 20151105
  Transmission Date: 20160304
  Serious: No
  Sender: FDA-Public Use
  Company Number: US-MDT-ADR-2015-02090

PATIENT
  Age: 51 Year
  Sex: Female

DRUGS (2)
  1. COMPOUNDED BACLOFEN INTRATHECAL (75 MCG/ML) [Suspect]
     Active Substance: BACLOFEN
     Indication: PAIN
     Dosage: 18.75 MCG/DAY
  2. BUPIVACAINE INTRATHECAL (75 UNITS/ML) [Suspect]
     Active Substance: BUPIVACAINE
     Dosage: 18.6 UNITS/DAY

REACTIONS (2)
  - Adverse drug reaction [None]
  - Device power source issue [None]
